FAERS Safety Report 10694558 (Version 1)
Quarter: 2015Q1

REPORT INFORMATION
  Report Type: Spontaneous
  Country: US (occurrence: US)
  Receive Date: 20150107
  Receipt Date: 20150107
  Transmission Date: 20150721
  Serious: No
  Sender: FDA-Public Use
  Company Number: US-BIOGENIDEC-2015BI000871

PATIENT
  Age: 64 Year
  Sex: Female

DRUGS (11)
  1. DORZOLAMIDE [Concomitant]
     Active Substance: DORZOLAMIDE
  2. CRESTOR [Concomitant]
     Active Substance: ROSUVASTATIN CALCIUM
  3. AMOX-CLAV [Concomitant]
     Active Substance: AMOXICILLIN\CLAVULANATE POTASSIUM
  4. TECFIDERA [Suspect]
     Active Substance: DIMETHYL FUMARATE
     Indication: MULTIPLE SCLEROSIS
     Route: 048
     Dates: start: 20140108
  5. GABAPENTIN. [Concomitant]
     Active Substance: GABAPENTIN
  6. CIPRO [Concomitant]
     Active Substance: CIPROFLOXACIN HYDROCHLORIDE
  7. TEMAZEPAM. [Concomitant]
     Active Substance: TEMAZEPAM
  8. LOSARTAN [Concomitant]
     Active Substance: LOSARTAN
  9. JANUVIA [Concomitant]
     Active Substance: SITAGLIPTIN PHOSPHATE
  10. CLONAZEPAM. [Concomitant]
     Active Substance: CLONAZEPAM
  11. LAMOTRIGINE. [Concomitant]
     Active Substance: LAMOTRIGINE

REACTIONS (2)
  - Pollakiuria [Unknown]
  - Urinary tract infection [Unknown]
